FAERS Safety Report 12640706 (Version 1)
Quarter: 2016Q3

REPORT INFORMATION
  Report Type: Spontaneous
  Country: IL (occurrence: IL)
  Receive Date: 20160810
  Receipt Date: 20160810
  Transmission Date: 20161109
  Serious: Yes (Life-Threatening, Hospitalization, Other)
  Sender: FDA-Public Use
  Company Number: IL-OTSUKA-2016_019622

PATIENT
  Age: 75 Year
  Sex: Male
  Weight: 90 kg

DRUGS (2)
  1. DACOGEN [Suspect]
     Active Substance: DECITABINE
     Indication: ACUTE MYELOID LEUKAEMIA
     Dosage: 40 MG
     Route: 042
     Dates: start: 20160522, end: 20160717
  2. DACOGEN [Suspect]
     Active Substance: DECITABINE
     Indication: ACUTE MYELOID LEUKAEMIA
     Dosage: 765 MG DAY 8 AND 22 EVERY 28 DAYS
     Route: 042
     Dates: start: 20160529, end: 20160724

REACTIONS (1)
  - Disseminated intravascular coagulation [Not Recovered/Not Resolved]

NARRATIVE: CASE EVENT DATE: 20160801
